FAERS Safety Report 8353152-5 (Version None)
Quarter: 2012Q2

REPORT INFORMATION
  Report Type: 
  Country: None (occurrence: None)
  Receive Date: 20120511
  Receipt Date: 20120508
  Transmission Date: 20120825
  Serious: Yes (Other)
  Sender: FDA-Public Use
  Company Number: US-PFIZER INC-2012034617

PATIENT
  Sex: Male

DRUGS (6)
  1. PROTONIX [Suspect]
     Indication: GASTROOESOPHAGEAL REFLUX DISEASE
     Dosage: 40 MG, DAILY ^SEVERAL YEARS^
     Route: 048
  2. PREDNISONE [Concomitant]
     Dosage: ^FOR 30 YEARS^
  3. VIAGRA [Suspect]
     Dosage: 100 MG, UNK
  4. NORVASC [Suspect]
     Dosage: 5 MG, UNK
  5. FOSAMAX [Concomitant]
     Indication: OSTEOPOROSIS
     Dosage: ^FOR 10 YEARS^
  6. LIPITOR [Suspect]
     Dosage: 10 MG, UNK

REACTIONS (1)
  - FEMUR FRACTURE [None]
